FAERS Safety Report 10068409 (Version 2)
Quarter: 2014Q2

REPORT INFORMATION
  Report Type: Spontaneous
  Country: US (occurrence: US)
  Receive Date: 20140409
  Receipt Date: 20140430
  Transmission Date: 20141212
  Serious: No
  Sender: FDA-Public Use
  Company Number: US-JNJFOC-20140319455

PATIENT
  Age: 46 Year
  Sex: Female

DRUGS (4)
  1. DURAGESIC [Suspect]
     Indication: PRODUCT USED FOR UNKNOWN INDICATION
     Route: 062
     Dates: start: 20140327
  2. PERCOCET [Concomitant]
     Dosage: 7.5/325 MG AS NEEDED
     Route: 065
     Dates: start: 2007
  3. FLEXERIL [Concomitant]
     Dosage: 7.5/325 MG AS NEEDED
     Route: 065
     Dates: start: 2007
  4. LYRICA [Concomitant]
     Dosage: 7.5/325 MG AS NEEDED
     Route: 065
     Dates: start: 2007

REACTIONS (9)
  - Product quality issue [Not Recovered/Not Resolved]
  - Product quality issue [Not Recovered/Not Resolved]
  - Wrong technique in drug usage process [Not Recovered/Not Resolved]
  - Wrong technique in drug usage process [Not Recovered/Not Resolved]
  - Wrong technique in drug usage process [Not Recovered/Not Resolved]
  - Wrong technique in drug usage process [Not Recovered/Not Resolved]
  - Nausea [Not Recovered/Not Resolved]
  - Dizziness [Not Recovered/Not Resolved]
  - Application site erythema [Not Recovered/Not Resolved]
